FAERS Safety Report 7607118-0 (Version None)
Quarter: 2011Q3

REPORT INFORMATION
  Report Type: 
  Country: None (occurrence: None)
  Receive Date: 20110713
  Receipt Date: 20110708
  Transmission Date: 20111222
  Serious: Yes (Death, Life-Threatening, Hospitalization, Disabling)
  Sender: FDA-Public Use
  Company Number: DK-JNJFOC-20110104324

PATIENT
  Sex: Female

DRUGS (1)
  1. SIMPONI [Suspect]
     Indication: RHEUMATOID ARTHRITIS
     Route: 058
     Dates: start: 20100804, end: 20101206

REACTIONS (6)
  - RENAL INFARCT [None]
  - CEREBRAL ARTERY EMBOLISM [None]
  - HEMIPARESIS [None]
  - ENDOCARDITIS [None]
  - ABDOMINAL PAIN [None]
  - PULMONARY OEDEMA [None]
